FAERS Safety Report 23184504 (Version 1)
Quarter: 2023Q4

REPORT INFORMATION
  Report Type: Spontaneous
  Country: FR (occurrence: FR)
  Receive Date: 20231115
  Receipt Date: 20231115
  Transmission Date: 20240110
  Serious: Yes (Hospitalization)
  Sender: FDA-Public Use
  Company Number: None

PATIENT
  Age: 62 Year
  Sex: Male
  Weight: 83 kg

DRUGS (5)
  1. TRETINOIN [Suspect]
     Active Substance: TRETINOIN
     Indication: Acute promyelocytic leukaemia
     Route: 042
     Dates: start: 20230903, end: 20230927
  2. HYDROXYUREA [Suspect]
     Active Substance: HYDROXYUREA
     Dosage: 500MG X2 MORNING AND EVENING
  3. HYDROXYUREA [Suspect]
     Active Substance: HYDROXYUREA
     Dosage: INCREASED TO 500MG X2 MORNING, NOON AND EVENING.
  4. TRISENOX [Suspect]
     Active Substance: ARSENIC TRIOXIDE
     Indication: Prophylaxis
     Route: 042
     Dates: start: 20230904, end: 20231027
  5. TRISENOX [Suspect]
     Active Substance: ARSENIC TRIOXIDE
     Indication: Acute promyelocytic leukaemia
     Route: 042
     Dates: start: 20230904, end: 20231027

REACTIONS (1)
  - Pericarditis [Recovered/Resolved]

NARRATIVE: CASE EVENT DATE: 20230906
